FAERS Safety Report 5764628-9 (Version None)
Quarter: 2008Q2

REPORT INFORMATION
  Report Type: 
  Country: None (occurrence: None)
  Receive Date: 20080611
  Receipt Date: 20080509
  Transmission Date: 20081010
  Serious: No
  Sender: FDA-Public Use
  Company Number: US-BAYER-US-2007-033091

PATIENT
  Age: 48 Year
  Sex: Female
  Weight: 59 kg

DRUGS (3)
  1. ULTRAVIST (PHARMACY BULK) [Suspect]
     Indication: COMPUTERISED TOMOGRAM
     Route: 042
     Dates: start: 20070830, end: 20070830
  2. BENADRYL ^PFIZER WARNER-LAMBERT^ [Concomitant]
     Dates: end: 20070830
  3. PREDNISONE TAB [Concomitant]
     Dates: end: 20070830

REACTIONS (3)
  - CHEST DISCOMFORT [None]
  - HEADACHE [None]
  - THROAT TIGHTNESS [None]
